FAERS Safety Report 23065689 (Version 1)
Quarter: 2023Q4

REPORT INFORMATION
  Report Type: Spontaneous
  Country: BE (occurrence: BE)
  Receive Date: 20231014
  Receipt Date: 20231014
  Transmission Date: 20240110
  Serious: Yes (Other)
  Sender: FDA-Public Use
  Company Number: BE-002147023-NVSC2023BE218248

PATIENT
  Age: 85 Year
  Sex: Male

DRUGS (1)
  1. XOLAIR [Suspect]
     Active Substance: OMALIZUMAB
     Indication: Chronic spontaneous urticaria
     Dosage: 2 DOSAGE FORM EVERY 4 WEEKS (FOR 6 YEARS)
     Route: 065

REACTIONS (6)
  - Prostate cancer [Recovered/Resolved]
  - General physical health deterioration [Unknown]
  - Myopathy [Unknown]
  - Peripheral motor neuropathy [Unknown]
  - Peripheral sensory neuropathy [Unknown]
  - Malaise [Unknown]
